FAERS Safety Report 17054061 (Version 2)
Quarter: 2020Q1

REPORT INFORMATION
  Report Type: Spontaneous
  Country: US (occurrence: US)
  Receive Date: 20191120
  Receipt Date: 20200203
  Transmission Date: 20200409
  Serious: No
  Sender: FDA-Public Use
  Company Number: US-PFIZER INC-2017001074

PATIENT
  Age: 22 Year
  Sex: Male
  Weight: 71.67 kg

DRUGS (1)
  1. BENEFIX [Suspect]
     Active Substance: COAGULATION FACTOR IX RECOMBINANT HUMAN\ISOPROPYL ALCOHOL
     Indication: FACTOR IX DEFICIENCY
     Dosage: 7200 IU, UNK

REACTIONS (3)
  - Wrist fracture [Unknown]
  - Radius fracture [Unknown]
  - Ulna fracture [Unknown]
